FAERS Safety Report 24465970 (Version 1)
Quarter: 2024Q4

REPORT INFORMATION
  Report Type: Report from Study
  Country: US (occurrence: US)
  Receive Date: 20241018
  Receipt Date: 20241018
  Transmission Date: 20250115
  Serious: No
  Sender: ROCHE
  Company Number: US-ROCHE-3524461

PATIENT
  Age: 86 Year
  Sex: Female

DRUGS (16)
  1. XOLAIR [Suspect]
     Active Substance: OMALIZUMAB
     Indication: Urticaria chronic
     Route: 058
  2. EPIPEN [Concomitant]
     Active Substance: EPINEPHRINE
     Dosage: 0.3 MG BY MOUTH IM
  3. VITAMIN C [Concomitant]
     Active Substance: ASCORBIC ACID
     Dosage: 500 MG TABLET BY MOUTH DAILY
  4. ASPIRIN [Concomitant]
     Active Substance: ASPIRIN
     Dosage: 81 MG TAB ONCE IN MORNING BY MOUTH
  5. CALCIUM CITRATE\CHOLECALCIFEROL [Concomitant]
     Active Substance: CALCIUM CITRATE\CHOLECALCIFEROL
  6. TENORMIN [Concomitant]
     Active Substance: ATENOLOL
     Dosage: 100 MG TAB BY MOUTH ONCE DAILY
  7. NEXIUM [Concomitant]
     Active Substance: ESOMEPRAZOLE MAGNESIUM
     Dosage: TAKE 20 MG BY MOUTH BEFORE BREAKFAST
  8. REPATHA [Concomitant]
     Active Substance: EVOLOCUMAB
     Dosage: INJECT 140 INTO SKIN EVERY 14 DAYS
  9. PEPCID [Concomitant]
     Active Substance: FAMOTIDINE
     Indication: Dyspepsia
     Dosage: 10 MG TAB BY MOUTH TWICE DAILY
  10. NEURONTIN [Concomitant]
     Active Substance: GABAPENTIN
     Dosage: 100 MG CAP, TAKE 1-3 BY MOUTH ONCE DAILY AT BETDIME
  11. IMDUR [Concomitant]
     Active Substance: ISOSORBIDE MONONITRATE
     Dosage: 30 MG TAB BY MOUTH ONCE DAILY
  12. MOBIC [Concomitant]
     Active Substance: MELOXICAM
     Dosage: 7.5 MG TAB BY MOUTH ONCE DAILY
  13. SYNTHROID [Concomitant]
     Active Substance: LEVOTHYROXINE SODIUM
     Dosage: 75 MCG TAB BY MOUTH ONCE DAILY
  14. SINGULAIR [Concomitant]
     Active Substance: MONTELUKAST SODIUM
     Dosage: 10 MG TAB BY MOUTH ONCE DAILY
  15. PAMELOR [Concomitant]
     Active Substance: NORTRIPTYLINE HYDROCHLORIDE
     Dosage: 25 MG CAP AT BEDTIME
     Route: 048
  16. GLYCOLAX [Concomitant]
     Active Substance: POLYETHYLENE GLYCOL 3350
     Dosage: 17 GM PER DOSE IN MORNING

REACTIONS (4)
  - Lip swelling [Unknown]
  - Melanocytic naevus [Unknown]
  - Lentigo [Unknown]
  - Seborrhoeic keratosis [Unknown]
